FAERS Safety Report 5639846-0 (Version None)
Quarter: 2008Q1

REPORT INFORMATION
  Report Type: 
  Country: None (occurrence: None)
  Receive Date: 20080226
  Receipt Date: 20080226
  Transmission Date: 20080703
  Serious: Yes (Other)
  Sender: FDA-Public Use
  Company Number: None

PATIENT
  Age: 39 Year
  Sex: Female

DRUGS (6)
  1. CHANTIX [Suspect]
     Indication: SMOKING CESSATION THERAPY
     Dosage: 1MG BID PO
     Route: 048
     Dates: start: 20070901, end: 20071030
  2. ALPRAZOLAM [Concomitant]
  3. DOCUSATE SODIUM [Concomitant]
  4. DEPAKOTE [Concomitant]
  5. PERCOCET [Concomitant]
  6. BENTYL [Concomitant]

REACTIONS (2)
  - ANXIETY [None]
  - MANIA [None]
